FAERS Safety Report 6646344-4 (Version None)
Quarter: 2010Q1

REPORT INFORMATION
  Report Type: 
  Country: None (occurrence: None)
  Receive Date: 20100323
  Receipt Date: 20100312
  Transmission Date: 20100710
  Serious: Yes (Other)
  Sender: FDA-Public Use
  Company Number: US-BAYER-201016844NA

PATIENT

DRUGS (1)
  1. CAMPATH [Suspect]
     Indication: RENAL TRANSPLANT
     Route: 058

REACTIONS (1)
  - KIDNEY TRANSPLANT REJECTION [None]
